FAERS Safety Report 13939909 (Version 2)
Quarter: 2017Q3

REPORT INFORMATION
  Report Type: Spontaneous
  Country: DE (occurrence: DE)
  Receive Date: 20170906
  Receipt Date: 20170914
  Transmission Date: 20171127
  Serious: Yes (Life-Threatening, Hospitalization)
  Sender: FDA-Public Use
  Company Number: DE-MYLANLABS-2017M1054437

PATIENT
  Age: 45 Year
  Sex: Male
  Weight: 70 kg

DRUGS (1)
  1. FASTJEKT [Suspect]
     Active Substance: EPINEPHRINE
     Indication: ANAPHYLACTIC REACTION
     Dosage: 0.3 MG, ONCE
     Route: 030
     Dates: start: 20170810, end: 20170810

REACTIONS (1)
  - Device malfunction [Recovered/Resolved]

NARRATIVE: CASE EVENT DATE: 20170810
